FAERS Safety Report 9780962 (Version 1)
Quarter: 2013Q4

REPORT INFORMATION
  Report Type: Spontaneous
  Country: DE (occurrence: None)
  Receive Date: 20131220
  Receipt Date: 20131220
  Transmission Date: 20140711
  Serious: Yes (Death)
  Sender: FDA-Public Use
  Company Number: 2013P1021952

PATIENT
  Age: 65 Year
  Sex: Male

DRUGS (3)
  1. PHENOBARBITAL [Suspect]
  2. DOXYLAMINE [Suspect]
     Route: 048
  3. CLOMIPRAMINE [Suspect]

REACTIONS (4)
  - Pulmonary oedema [None]
  - Brain oedema [None]
  - Completed suicide [None]
  - Toxicity to various agents [None]
